FAERS Safety Report 8531255-X (Version None)
Quarter: 2012Q3

REPORT INFORMATION
  Report Type: 
  Country: None (occurrence: None)
  Receive Date: 20120723
  Receipt Date: 20120713
  Transmission Date: 20120928
  Serious: Yes (Hospitalization)
  Sender: FDA-Public Use
  Company Number: US-ASTRAZENECA-2012SE37274

PATIENT
  Age: 68 Year
  Sex: Female
  Weight: 72.6 kg

DRUGS (5)
  1. DIABETIC MEDICATION [Concomitant]
  2. PRILOSEC OTC [Suspect]
     Indication: GASTROOESOPHAGEAL REFLUX DISEASE
     Dosage: TOOK 1 TABLET AT 4 PM AND TOOK ONE MORE TABLET AT 8 PM
     Route: 048
     Dates: start: 20120601, end: 20120601
  3. PRILOSEC OTC [Suspect]
     Indication: DYSPEPSIA
     Dosage: TOOK 1 TABLET AT 4 PM AND TOOK ONE MORE TABLET AT 8 PM
     Route: 048
     Dates: start: 20120601, end: 20120601
  4. CARDIAC MEDICATION [Concomitant]
  5. CALCIUM CARBONATE [Concomitant]
     Indication: GASTROOESOPHAGEAL REFLUX DISEASE

REACTIONS (4)
  - POISONING [None]
  - DEHYDRATION [None]
  - VOMITING [None]
  - THROAT IRRITATION [None]
